FAERS Safety Report 12010794 (Version 1)
Quarter: 2016Q1

REPORT INFORMATION
  Report Type: Spontaneous
  Country: GB (occurrence: GB)
  Receive Date: 20160205
  Receipt Date: 20160205
  Transmission Date: 20160526
  Serious: Yes (Other)
  Sender: FDA-Public Use
  Company Number: GB-ASTRAZENECA-2015SF24159

PATIENT
  Sex: Male
  Weight: 99.3 kg

DRUGS (6)
  1. DAPAGLIFLOZIN [Concomitant]
     Active Substance: DAPAGLIFLOZIN
  2. BYDUREON [Suspect]
     Active Substance: EXENATIDE
     Dosage: PEN+VIALS
     Route: 065
  3. ASPIRIN. [Concomitant]
     Active Substance: ASPIRIN
     Dosage: } 5MG TABLET, ONCE DAILY
  4. SIMVASTATIN. [Concomitant]
     Active Substance: SIMVASTATIN
  5. METFORMIN [Concomitant]
     Active Substance: METFORMIN HYDROCHLORIDE
  6. RAMIPRIL. [Concomitant]
     Active Substance: RAMIPRIL

REACTIONS (4)
  - Incorrect dose administered by device [Recovered/Resolved]
  - Needle issue [Unknown]
  - Injection site nodule [Recovered/Resolved]
  - Injection site haemorrhage [Recovered/Resolved]
